FAERS Safety Report 8343187-0 (Version None)
Quarter: 2012Q1

REPORT INFORMATION
  Report Type: 
  Country: None (occurrence: None)
  Receive Date: 20120330
  Receipt Date: 20110601
  Transmission Date: 20120608
  Serious: Yes (Other)
  Sender: FDA-Public Use
  Company Number: PHHY2011US48732

PATIENT
  Sex: Male

DRUGS (5)
  1. EXELON [Suspect]
     Dosage: 4.6 MG, ONE PATCH A DAY, TRANSDERMAL
     Route: 062
     Dates: start: 20110320, end: 20110411
  2. DEPAKOTE [Concomitant]
  3. CALCIUM CARBONATE [Concomitant]
  4. EFFEXOR [Concomitant]
  5. LEVODOPA (LEVODOPA) [Concomitant]

REACTIONS (4)
  - CONFUSIONAL STATE [None]
  - DYSARTHRIA [None]
  - DELUSION [None]
  - RASH [None]
